FAERS Safety Report 18242393 (Version 2)
Quarter: 2020Q4

REPORT INFORMATION
  Report Type: Spontaneous
  Country: FR (occurrence: FR)
  Receive Date: 20200908
  Receipt Date: 20201006
  Transmission Date: 20210113
  Serious: Yes (Death, Hospitalization, Other)
  Sender: FDA-Public Use
  Company Number: FR-ASTELLAS-2020US026502

PATIENT
  Age: 64 Year
  Sex: Female

DRUGS (2)
  1. PROGRAF [Suspect]
     Active Substance: TACROLIMUS
     Indication: LIVER TRANSPLANT
     Dosage: 1 MG DAILY BY SYRINGE PUMP SYSTEM DURING 1 DAY THEN 0.8 MG DAILY
     Route: 042
     Dates: start: 20200731, end: 20200812
  2. PROGRAF [Suspect]
     Active Substance: TACROLIMUS
     Indication: LIVER TRANSPLANT
     Dosage: 2 MG, TWICE DAILY (2 MG IN THE MORNING AND 2 MG IN THE EVENING)
     Route: 048

REACTIONS (6)
  - Metastases to central nervous system [Fatal]
  - Cerebral artery thrombosis [Unknown]
  - Immunosuppressant drug level increased [Recovered/Resolved]
  - Ischaemic stroke [Unknown]
  - Lung neoplasm malignant [Fatal]
  - Pineal neoplasm [Fatal]

NARRATIVE: CASE EVENT DATE: 20200724
